FAERS Safety Report 7081439-5 (Version None)
Quarter: 2010Q4

REPORT INFORMATION
  Report Type: 
  Country: None (occurrence: None)
  Receive Date: 20101103
  Receipt Date: 20101022
  Transmission Date: 20110411
  Serious: Yes (Hospitalization)
  Sender: FDA-Public Use
  Company Number: US-WATSON-2010-14033

PATIENT
  Sex: Male
  Weight: 83.9 kg

DRUGS (1)
  1. DOXYCYCLINE HYCLATE [Suspect]
     Indication: PNEUMONIA
     Dosage: 100 MG, BID X 2 WEEKS
     Route: 048
     Dates: start: 20100201, end: 20100201

REACTIONS (5)
  - CONSTIPATION [None]
  - DYSURIA [None]
  - FUNGAL INFECTION [None]
  - HAEMOGLOBIN DECREASED [None]
  - MYELODYSPLASTIC SYNDROME [None]
